FAERS Safety Report 19458528 (Version 1)
Quarter: 2021Q2

REPORT INFORMATION
  Report Type: Spontaneous
  Country: NO (occurrence: NO)
  Receive Date: 20210624
  Receipt Date: 20210624
  Transmission Date: 20210717
  Serious: Yes (Other)
  Sender: FDA-Public Use
  Company Number: NO-MYLANLABS-2021M1036919

PATIENT
  Age: 7 Year
  Sex: Male

DRUGS (12)
  1. SIROLIMUS. [Suspect]
     Active Substance: SIROLIMUS
     Indication: EOSINOPHILIA
  2. SORAFENIB [Suspect]
     Active Substance: SORAFENIB
     Indication: MYELOID LEUKAEMIA
     Dosage: 100 MILLIGRAM/SQ. METER, BID
  3. IMATINIB. [Suspect]
     Active Substance: IMATINIB MESYLATE
     Indication: MYELOID LEUKAEMIA
  4. SIROLIMUS. [Suspect]
     Active Substance: SIROLIMUS
     Indication: MALIGNANT LYMPHOID NEOPLASM
     Dosage: UNK
     Route: 065
  5. SORAFENIB [Suspect]
     Active Substance: SORAFENIB
     Indication: MALIGNANT LYMPHOID NEOPLASM
     Dosage: 150 MILLIGRAM/SQ. METER, BID
     Route: 065
  6. SORAFENIB [Suspect]
     Active Substance: SORAFENIB
     Indication: EOSINOPHILIA
  7. IMATINIB. [Suspect]
     Active Substance: IMATINIB MESYLATE
     Indication: EOSINOPHILIA
  8. SIROLIMUS. [Suspect]
     Active Substance: SIROLIMUS
     Indication: FLT3 GENE MUTATION
  9. SORAFENIB [Suspect]
     Active Substance: SORAFENIB
     Indication: FLT3 GENE MUTATION
  10. IMATINIB. [Suspect]
     Active Substance: IMATINIB MESYLATE
     Indication: FLT3 GENE MUTATION
  11. SIROLIMUS. [Suspect]
     Active Substance: SIROLIMUS
     Indication: MYELOID LEUKAEMIA
  12. IMATINIB. [Suspect]
     Active Substance: IMATINIB MESYLATE
     Indication: MALIGNANT LYMPHOID NEOPLASM
     Dosage: 300 MILLIGRAM/SQ. METER
     Route: 065

REACTIONS (3)
  - Drug ineffective [Unknown]
  - Alopecia [Recovering/Resolving]
  - Decreased appetite [Recovering/Resolving]
